FAERS Safety Report 9333770 (Version 3)
Quarter: 2013Q2

REPORT INFORMATION
  Report Type: Spontaneous
  Country: DE (occurrence: DE)
  Receive Date: 20130606
  Receipt Date: 20130628
  Transmission Date: 20140414
  Serious: Yes (Death, Hospitalization, Other)
  Sender: FDA-Public Use
  Company Number: DE-OTSUKA-EU-2013-10136

PATIENT
  Age: 79 Year
  Sex: Female
  Weight: 60 kg

DRUGS (4)
  1. PLETAL [Suspect]
     Indication: PERIPHERAL ARTERIAL OCCLUSIVE DISEASE
     Dosage: 100 MG MILLIGRAM(S), UNK
     Route: 065
     Dates: start: 20130423, end: 20130512
  2. XARELTO [Concomitant]
     Indication: ATRIAL FIBRILLATION
     Dosage: 20 MG MILLIGRAM(S), DAILY DOSE
     Route: 048
     Dates: start: 20120524
  3. LANICOR [Concomitant]
     Indication: ATRIAL FIBRILLATION
     Dosage: 1 DF DOSAGE FORM, DAILY DOSE
     Route: 048
     Dates: start: 20110404
  4. ISOSORBIDE MONONITRATE [Concomitant]
     Indication: CORONARY ARTERY DISEASE
     Dosage: 40 MG MILLIGRAM(S), DAILY DOSE
     Route: 048
     Dates: start: 20120507

REACTIONS (2)
  - Cerebral haemorrhage [Fatal]
  - Loss of consciousness [Not Recovered/Not Resolved]
